FAERS Safety Report 8516293-5 (Version None)
Quarter: 2012Q3

REPORT INFORMATION
  Report Type: 
  Country: None (occurrence: None)
  Receive Date: 20120717
  Receipt Date: 20120703
  Transmission Date: 20120928
  Serious: No
  Sender: FDA-Public Use
  Company Number: US-009507513-1206USA05379

PATIENT

DRUGS (3)
  1. MAXALT-MLT [Suspect]
     Indication: MIGRAINE
     Dosage: 10 MG, UNK
     Route: 060
     Dates: start: 20111201
  2. OMNARIS [Concomitant]
  3. LACTAID [Concomitant]

REACTIONS (1)
  - ABDOMINAL PAIN [None]
